FAERS Safety Report 9785024 (Version 1)
Quarter: 2013Q4

REPORT INFORMATION
  Report Type: Report from Study
  Country: US (occurrence: US)
  Receive Date: 20131227
  Receipt Date: 20131227
  Transmission Date: 20140711
  Serious: Yes (Hospitalization)
  Sender: FDA-Public Use
  Company Number: US-ROCHE-1321690

PATIENT
  Sex: Female

DRUGS (4)
  1. CELLCEPT [Suspect]
     Indication: POLYMYOSITIS
     Dosage: 12 HOURS
     Route: 048
     Dates: start: 201202
  2. TYLENOL WITH CODEINE [Concomitant]
     Dosage: 1-2 TABS BID TO TID PRN
     Route: 048
  3. PREDNISONE [Concomitant]
     Route: 065
  4. VERAPAMIL [Concomitant]
     Dosage: 1 DAYS
     Route: 065

REACTIONS (25)
  - Therapy change [Unknown]
  - Drug ineffective [Unknown]
  - Blood creatine phosphokinase increased [Unknown]
  - Back pain [Unknown]
  - Mucosal dryness [Unknown]
  - Depression [Unknown]
  - Fatigue [Unknown]
  - Dry eye [Unknown]
  - Eye pain [Unknown]
  - Dry mouth [Unknown]
  - Paranasal sinus hypersecretion [Unknown]
  - Alopecia [Unknown]
  - Myalgia [Unknown]
  - Muscular weakness [Unknown]
  - Headache [Unknown]
  - Respiration abnormal [Unknown]
  - Hand deformity [Unknown]
  - Fibromyalgia [Unknown]
  - Asthenia [Unknown]
  - Oesophageal disorder [Unknown]
  - Respiratory muscle weakness [Unknown]
  - Wheelchair user [Unknown]
  - Arcus lipoides [Unknown]
  - White blood cell count increased [Unknown]
  - Vitamin D decreased [Unknown]
